FAERS Safety Report 10218437 (Version 2)
Quarter: 2014Q2

REPORT INFORMATION
  Report Type: Spontaneous
  Country: US (occurrence: US)
  Receive Date: 20140605
  Receipt Date: 20140611
  Transmission Date: 20141212
  Serious: Yes (Hospitalization, Disabling, Other)
  Sender: FDA-Public Use
  Company Number: US-ROCHE-1413026

PATIENT
  Age: 38 Year
  Sex: Male

DRUGS (4)
  1. ZELBORAF [Suspect]
     Indication: MALIGNANT MELANOMA
     Route: 048
     Dates: start: 20120726
  2. EFFEXOR [Suspect]
     Indication: DEPRESSION
     Route: 048
     Dates: start: 20131023, end: 20140512
  3. DRONABINOL [Concomitant]
     Indication: NAUSEA
     Route: 048
     Dates: start: 20130624
  4. XANAX [Concomitant]
     Indication: ANXIETY
     Route: 048
     Dates: start: 20120611

REACTIONS (6)
  - Suicidal ideation [Recovered/Resolved]
  - Mood altered [Recovered/Resolved]
  - Abnormal behaviour [Unknown]
  - Formication [Unknown]
  - Nausea [Unknown]
  - Dehydration [Unknown]
